FAERS Safety Report 24222676 (Version 3)
Quarter: 2024Q4

REPORT INFORMATION
  Report Type: Spontaneous
  Country: US (occurrence: US)
  Receive Date: 20240819
  Receipt Date: 20241122
  Transmission Date: 20250115
  Serious: Yes (Hospitalization, Other)
  Sender: BAYER HEALTHCARE PHARMACEUTICALS INC.
  Company Number: US-BAYER-2024A116895

PATIENT
  Age: 40 Year
  Sex: Male
  Weight: 192 kg

DRUGS (4)
  1. JIVI [Suspect]
     Active Substance: DAMOCTOCOG ALFA PEGOL
     Indication: Prophylaxis
     Dosage: UNK, TWICE PER WEEK PRN
     Route: 042
     Dates: start: 202212
  2. JIVI [Suspect]
     Active Substance: DAMOCTOCOG ALFA PEGOL
     Indication: Factor VIII deficiency
     Dosage: JIVI 3000/ INFUSE 3600 UNITS TWICE PER WEEK
     Route: 042
     Dates: start: 20221213
  3. JIVI [Suspect]
     Active Substance: DAMOCTOCOG ALFA PEGOL
     Indication: Prophylaxis
     Dosage: JIVI 1000/INFUSE 1600 UNITS
     Route: 042
     Dates: start: 202212
  4. JIVI [Suspect]
     Active Substance: DAMOCTOCOG ALFA PEGOL
     Indication: Prophylaxis
     Dosage: JIVI 2000/INFUSE 2000 UNITS
     Route: 042
     Dates: start: 202212

REACTIONS (6)
  - Haemarthrosis [None]
  - Haemarthrosis [Not Recovered/Not Resolved]
  - Haemarthrosis [None]
  - Haemarthrosis [None]
  - Traumatic haemorrhage [None]
  - Weight increased [None]

NARRATIVE: CASE EVENT DATE: 20240808
